FAERS Safety Report 14633108 (Version 1)
Quarter: 2018Q1

REPORT INFORMATION
  Report Type: Spontaneous
  Country: US (occurrence: US)
  Receive Date: 20180313
  Receipt Date: 20180313
  Transmission Date: 20180509
  Serious: No
  Sender: FDA-Public Use
  Company Number: US-009507513-1803USA003391

PATIENT

DRUGS (6)
  1. M-M-R II [Suspect]
     Active Substance: MEASLES VIRUS STRAIN ENDERS^ ATTENUATED EDMONSTON LIVE ANTIGEN\MUMPS VIRUS STRAIN B LEVEL JERYL LYNN LIVE ANTIGEN\RUBELLA VIRUS STRAIN WISTAR RA 27/3 LIVE ANTIGEN
     Dosage: 1 DF
     Dates: start: 20180306, end: 20180306
  2. STERILE DILUENT [Suspect]
     Active Substance: WATER
     Dosage: 1 DF, UNK
     Dates: start: 20180306
  3. TYPHIM VI [Suspect]
     Active Substance: SALMONELLA TYPHI TY2 VI POLYSACCHARIDE ANTIGEN
     Dates: start: 20180306
  4. M-M-R II [Suspect]
     Active Substance: MEASLES VIRUS STRAIN ENDERS^ ATTENUATED EDMONSTON LIVE ANTIGEN\MUMPS VIRUS STRAIN B LEVEL JERYL LYNN LIVE ANTIGEN\RUBELLA VIRUS STRAIN WISTAR RA 27/3 LIVE ANTIGEN
     Indication: PROPHYLAXIS
     Dosage: 1 DF
     Dates: start: 20180301, end: 20180301
  5. STERILE DILUENT [Suspect]
     Active Substance: WATER
     Dosage: 1 DF, UNK
     Dates: start: 20180301
  6. TYPHIM VI [Suspect]
     Active Substance: SALMONELLA TYPHI TY2 VI POLYSACCHARIDE ANTIGEN
     Indication: PROPHYLAXIS
     Dosage: UNK
     Dates: start: 20180301

REACTIONS (2)
  - Product use issue [Unknown]
  - No adverse event [Unknown]

NARRATIVE: CASE EVENT DATE: 20180306
